FAERS Safety Report 11323670 (Version 1)
Quarter: 2015Q3

REPORT INFORMATION
  Report Type: Spontaneous
  Country: IT (occurrence: IT)
  Receive Date: 20150730
  Receipt Date: 20150730
  Transmission Date: 20151125
  Serious: Yes (Life-Threatening)
  Sender: FDA-Public Use
  Company Number: IT-HOSPIRA-2534403

PATIENT
  Age: 11 Year
  Sex: Male

DRUGS (1)
  1. METHOTREXATE [Suspect]
     Active Substance: METHOTREXATE
     Indication: CHEMOTHERAPY
     Dosage: 12 G/M2
     Route: 042
     Dates: start: 20090202, end: 20090202

REACTIONS (8)
  - Oxygen saturation decreased [Recovered/Resolved]
  - Tachycardia [Recovered/Resolved]
  - Nausea [Recovered/Resolved]
  - Vomiting [Recovered/Resolved]
  - Agitation [Recovered/Resolved]
  - Chest discomfort [Recovered/Resolved]
  - Urticaria [Recovered/Resolved]
  - Palatal swelling [Recovered/Resolved]

NARRATIVE: CASE EVENT DATE: 20090202
